FAERS Safety Report 4963044-7 (Version None)
Quarter: 2006Q2

REPORT INFORMATION
  Report Type: 
  Country: None (occurrence: None)
  Receive Date: 20060405
  Receipt Date: 20060324
  Transmission Date: 20061013
  Serious: Yes (Death)
  Sender: FDA-Public Use
  Company Number: JP-JNJFOC-20060202129

PATIENT
  Sex: Male

DRUGS (15)
  1. RISPERDAL [Suspect]
     Route: 048
  2. RISPERDAL [Suspect]
     Route: 048
  3. RISPERDAL [Suspect]
     Route: 048
  4. RISPERDAL [Suspect]
     Indication: SCHIZOPHRENIA
     Route: 048
  5. HALOPERIDOL [Suspect]
     Indication: SCHIZOPHRENIA
     Route: 048
  6. SULTOPRIDE HYDROCHLORIDE [Suspect]
     Indication: SCHIZOPHRENIA
     Route: 048
  7. SULTOPRIDE HYDROCHLORIDE [Suspect]
     Route: 048
  8. SULTOPRIDE HYDROCHLORIDE [Suspect]
     Route: 048
  9. AMOBARBITAL SODIUM [Concomitant]
     Indication: SCHIZOPHRENIA
     Route: 048
  10. BROMVALERYLUREA [Concomitant]
     Indication: SCHIZOPHRENIA
     Route: 048
  11. CHLORPROMAZINE-PROMETHAZINE COMBINED DRUG [Concomitant]
     Route: 048
  12. CHLORPROMAZINE-PROMETHAZINE COMBINED DRUG [Concomitant]
     Indication: SCHIZOPHRENIA
     Route: 048
  13. ZOPICLONE [Concomitant]
     Indication: SCHIZOPHRENIA
     Route: 048
  14. SENNOSIDE [Concomitant]
     Indication: CONSTIPATION
     Route: 048
  15. MAGNESIUM OXIDE [Concomitant]
     Indication: CONSTIPATION
     Route: 048

REACTIONS (8)
  - AGGRESSION [None]
  - ASPARTATE AMINOTRANSFERASE INCREASED [None]
  - CARDIO-RESPIRATORY ARREST [None]
  - ELECTROCARDIOGRAM QT CORRECTED INTERVAL PROLONGED [None]
  - EMPHYSEMA [None]
  - RED BLOOD CELL COUNT DECREASED [None]
  - RESPIRATORY FAILURE [None]
  - RESTLESSNESS [None]
